FAERS Safety Report 9492821 (Version 1)
Quarter: 2013Q3

REPORT INFORMATION
  Report Type: Spontaneous
  Country: IT (occurrence: IT)
  Receive Date: 20130830
  Receipt Date: 20130830
  Transmission Date: 20140515
  Serious: Yes (Other)
  Sender: FDA-Public Use
  Company Number: IT-SANOFI-AVENTIS-2013SA085560

PATIENT
  Age: 84 Year
  Sex: Male

DRUGS (4)
  1. KARVEZIDE [Suspect]
     Indication: HYPERTENSION
     Route: 048
     Dates: start: 20130716, end: 20130716
  2. COUMADIN [Concomitant]
     Indication: ATRIAL FIBRILLATION
     Dosage: STRENGTH: 5 MG
     Route: 048
     Dates: start: 20130101, end: 20130716
  3. LOPRESSOR [Concomitant]
     Dosage: STERNGTH: 100 MG
     Route: 048
  4. XATRAL [Concomitant]
     Dosage: STRENGTH: 10 MG
     Route: 048

REACTIONS (5)
  - Presyncope [Recovered/Resolved]
  - Nausea [Recovered/Resolved]
  - Cold sweat [Recovered/Resolved]
  - Hypotension [Recovered/Resolved]
  - Incorrect drug dosage form administered [Unknown]
